FAERS Safety Report 19417306 (Version 1)
Quarter: 2021Q2

REPORT INFORMATION
  Report Type: Spontaneous
  Country: AU (occurrence: AU)
  Receive Date: 20210614
  Receipt Date: 20210614
  Transmission Date: 20210717
  Serious: Yes (Death)
  Sender: FDA-Public Use
  Company Number: AU-BAXTER-2021BAX015109

PATIENT
  Age: 7 Year
  Sex: Female

DRUGS (1)
  1. MIDAZOLAM APOTEX/GENRX MIDAZOLAM/APO?MIDAZOLAM [Suspect]
     Active Substance: MIDAZOLAM
     Indication: SEIZURE
     Route: 065

REACTIONS (3)
  - Streptococcal sepsis [Fatal]
  - Hypotension [Unknown]
  - Respiratory disorder [Unknown]
